FAERS Safety Report 22537464 (Version 2)
Quarter: 2023Q2

REPORT INFORMATION
  Report Type: Spontaneous
  Country: US (occurrence: US)
  Receive Date: 20230608
  Receipt Date: 20230620
  Transmission Date: 20230721
  Serious: Yes (Hospitalization)
  Sender: FDA-Public Use
  Company Number: US-TEVA-2023-US-2893316

PATIENT
  Age: 25 Year
  Sex: Female

DRUGS (1)
  1. CLONIDINE [Suspect]
     Active Substance: CLONIDINE
     Indication: Product used for unknown indication
     Dosage: 0.1MG PILLS; ATLEAST 10
     Route: 048

REACTIONS (6)
  - Bradycardia [Recovering/Resolving]
  - Hypotension [Recovering/Resolving]
  - Lethargy [Recovering/Resolving]
  - Intentional overdose [Unknown]
  - Maternal exposure during pregnancy [Unknown]
  - Live birth [Unknown]
